FAERS Safety Report 4595699-3 (Version None)
Quarter: 2005Q1

REPORT INFORMATION
  Report Type: 
  Country: None (occurrence: None)
  Receive Date: 20050224
  Receipt Date: 20050208
  Transmission Date: 20050727
  Serious: Yes (Death)
  Sender: FDA-Public Use
  Company Number: ENTC2005-0044

PATIENT
  Age: 80 Year
  Sex: Male

DRUGS (2)
  1. STALEVO 100 [Suspect]
     Indication: PARKINSON'S DISEASE
     Dosage: ORAL
     Route: 048
  2. ANTI-PARKINSON AGENTS [Concomitant]

REACTIONS (2)
  - CONDITION AGGRAVATED [None]
  - TREMOR [None]
